FAERS Safety Report 13227019 (Version 1)
Quarter: 2017Q1

REPORT INFORMATION
  Report Type: Spontaneous
  Country: US (occurrence: US)
  Receive Date: 20170213
  Receipt Date: 20170213
  Transmission Date: 20170428
  Serious: No
  Sender: FDA-Public Use
  Company Number: US-ENDO PHARMACEUTICALS INC-2016SCPR015882

PATIENT

DRUGS (1)
  1. NASCOBAL [Suspect]
     Active Substance: CYANOCOBALAMIN
     Indication: VITAMIN B12 ABNORMAL
     Dosage: 1 SPR, WEEKLY
     Route: 045
     Dates: start: 20160915, end: 20160915

REACTIONS (3)
  - Nasal disorder [Not Recovered/Not Resolved]
  - Scab [Not Recovered/Not Resolved]
  - Rhinitis [Not Recovered/Not Resolved]

NARRATIVE: CASE EVENT DATE: 20160915
